FAERS Safety Report 6076235-1 (Version None)
Quarter: 2009Q1

REPORT INFORMATION
  Report Type: 
  Country: None (occurrence: None)
  Receive Date: 20090209
  Receipt Date: 20090129
  Transmission Date: 20090719
  Serious: Yes (Hospitalization, Other)
  Sender: FDA-Public Use
  Company Number: 2008-04216

PATIENT
  Sex: Male

DRUGS (4)
  1. VELCADE [Suspect]
     Indication: PLASMACYTOMA
     Dosage: 2.6 MG, INTRAVENOUS
     Route: 042
     Dates: start: 20080923, end: 20081003
  2. EMBOLEX [Suspect]
     Indication: DRUG USE FOR UNKNOWN INDICATION
  3. MELPHALAN [Concomitant]
  4. PREDNISONE [Concomitant]

REACTIONS (8)
  - CONVULSION [None]
  - ENURESIS [None]
  - FALL [None]
  - HEPARIN-INDUCED THROMBOCYTOPENIA [None]
  - LOSS OF CONSCIOUSNESS [None]
  - ORTHOSTATIC HYPOTENSION [None]
  - RASH PRURITIC [None]
  - RETROGRADE AMNESIA [None]
